FAERS Safety Report 14069066 (Version 1)
Quarter: 2017Q4

REPORT INFORMATION
  Report Type: Spontaneous
  Country: BR (occurrence: BR)
  Receive Date: 20171010
  Receipt Date: 20171010
  Transmission Date: 20180321
  Serious: Yes (Disabling)
  Sender: FDA-Public Use
  Company Number: BR-PFIZER INC-2017435616

PATIENT
  Age: 28 Year
  Sex: Male

DRUGS (3)
  1. TALIGLUCERASE ALFA [Suspect]
     Active Substance: TALIGLUCERASE ALFA
     Indication: GAUCHER^S DISEASE TYPE I
     Dosage: 24 IU/KG EVERY 2 WEEKS
     Route: 042
  2. MORPHINE [Concomitant]
     Active Substance: MORPHINE
     Dosage: EVERY 4 HOURS
  3. DIPIRONE [Concomitant]
     Active Substance: METAMIZOLE SODIUM
     Dosage: EVERY 4 HOURS

REACTIONS (3)
  - Osteonecrosis [Unknown]
  - Pain in extremity [Unknown]
  - Infusion related reaction [Unknown]
